FAERS Safety Report 9354566 (Version 1)
Quarter: 2013Q2

REPORT INFORMATION
  Report Type: Spontaneous
  Country: US (occurrence: US)
  Receive Date: 20130618
  Receipt Date: 20130618
  Transmission Date: 20140414
  Serious: Yes (Hospitalization, Other)
  Sender: FDA-Public Use
  Company Number: US-TEVA-405509USA

PATIENT
  Age: 14 Year
  Sex: Female

DRUGS (2)
  1. CLARAVIS [Suspect]
  2. YAZ [Concomitant]

REACTIONS (3)
  - Abdominal pain [Recovering/Resolving]
  - Cholecystectomy [Recovering/Resolving]
  - Ulcer [Unknown]
